FAERS Safety Report 8260468-X (Version None)
Quarter: 2012Q2

REPORT INFORMATION
  Report Type: 
  Country: None (occurrence: None)
  Receive Date: 20120404
  Receipt Date: 20120402
  Transmission Date: 20120825
  Serious: Yes (Hospitalization)
  Sender: FDA-Public Use
  Company Number: CA-MERCK-1204USA00137

PATIENT
  Age: 28 Year
  Sex: Male

DRUGS (1)
  1. ISENTRESS [Suspect]
     Indication: HIV INFECTION
     Route: 048
     Dates: start: 20110314

REACTIONS (5)
  - VOMITING [None]
  - DEHYDRATION [None]
  - NAUSEA [None]
  - WEIGHT DECREASED [None]
  - FEEDING DISORDER [None]
